FAERS Safety Report 13342320 (Version 2)
Quarter: 2017Q1

REPORT INFORMATION
  Report Type: Spontaneous
  Country: US (occurrence: US)
  Receive Date: 20170316
  Receipt Date: 20170322
  Transmission Date: 20170428
  Serious: Yes (Disabling, Other)
  Sender: FDA-Public Use
  Company Number: US-DRREDDYS-USA/USA/17/0087824

PATIENT
  Sex: Male

DRUGS (2)
  1. SIMVASTATIN. [Suspect]
     Active Substance: SIMVASTATIN
     Indication: PRODUCT USED FOR UNKNOWN INDICATION
     Route: 065
  2. NIACIN. [Concomitant]
     Active Substance: NIACIN
     Indication: PRODUCT USED FOR UNKNOWN INDICATION
     Route: 065

REACTIONS (6)
  - Myalgia [Recovering/Resolving]
  - Impaired quality of life [Unknown]
  - Exercise tolerance decreased [Recovering/Resolving]
  - Blood testosterone decreased [Unknown]
  - Asthenia [Recovering/Resolving]
  - Muscle fatigue [Recovering/Resolving]
